FAERS Safety Report 4337476-4 (Version None)
Quarter: 2004Q2

REPORT INFORMATION
  Report Type: 
  Country: None (occurrence: None)
  Receive Date: 20040413
  Receipt Date: 20040413
  Transmission Date: 20050107
  Serious: Yes (Other)
  Sender: FDA-Public Use
  Company Number: None

PATIENT
  Sex: Female
  Weight: 142 kg

DRUGS (2)
  1. CARBOPLATIN [Suspect]
  2. IRINOTECAN [Concomitant]

REACTIONS (1)
  - MEDICATION ERROR [None]
